FAERS Safety Report 4898694-X (Version None)
Quarter: 2006Q1

REPORT INFORMATION
  Report Type: 
  Country: None (occurrence: None)
  Receive Date: 20060202
  Receipt Date: 20060126
  Transmission Date: 20060701
  Serious: Yes (Hospitalization)
  Sender: FDA-Public Use
  Company Number: BR-BRISTOL-MYERS SQUIBB COMPANY-13262092

PATIENT
  Age: 50 Year
  Sex: Male

DRUGS (4)
  1. TEQUIN [Suspect]
     Indication: PNEUMONIA
     Route: 048
     Dates: start: 20051230, end: 20060108
  2. ASPIRIN [Concomitant]
  3. ENALAPRIL [Concomitant]
  4. PROZAC [Concomitant]

REACTIONS (1)
  - HYPERGLYCAEMIA [None]
